FAERS Safety Report 5046504-2 (Version None)
Quarter: 2006Q3

REPORT INFORMATION
  Report Type: 
  Country: None (occurrence: None)
  Receive Date: 20060710
  Receipt Date: 20060628
  Transmission Date: 20061208
  Serious: Yes (Death, Congenital Anomaly)
  Sender: FDA-Public Use
  Company Number: US-GILEAD-2006-0009809

PATIENT
  Sex: Female

DRUGS (3)
  1. TRUVADA [Suspect]
     Route: 064
  2. VIRAMUNE [Suspect]
     Route: 064
  3. RETROVIR [Suspect]
     Route: 064
     Dates: start: 20060506, end: 20060506

REACTIONS (5)
  - ASCITES [None]
  - DEATH NEONATAL [None]
  - DRUG EXPOSURE DURING PREGNANCY [None]
  - HYDROPS FOETALIS [None]
  - MULTIPLE CONGENITAL ABNORMALITIES [None]
